FAERS Safety Report 9547759 (Version 1)
Quarter: 2013Q3

REPORT INFORMATION
  Report Type: Spontaneous
  Country: CH (occurrence: None)
  Receive Date: 20130920
  Receipt Date: 20130920
  Transmission Date: 20140515
  Serious: Yes (Hospitalization)
  Sender: FDA-Public Use
  Company Number: 20130488

PATIENT
  Age: 18 Year
  Sex: Female
  Weight: 45 kg

DRUGS (1)
  1. FERINJECT [Suspect]
     Indication: ANAEMIA
     Route: 042
     Dates: start: 20130424, end: 20130424

REACTIONS (3)
  - Contusion [None]
  - Rash generalised [None]
  - Skin burning sensation [None]
